FAERS Safety Report 24594514 (Version 1)
Quarter: 2024Q4

REPORT INFORMATION
  Report Type: Spontaneous
  Country: US (occurrence: None)
  Receive Date: 20241108
  Receipt Date: 20241108
  Transmission Date: 20250114
  Serious: No
  Sender: Public
  Company Number: None

PATIENT
  Age: 81 Year
  Sex: Male

DRUGS (2)
  1. MYRBETRIQ [Suspect]
     Active Substance: MIRABEGRON
     Dosage: 50 MG/MG DAILY ORAL
     Route: 048
     Dates: start: 20241031
  2. MYRBETRIQ [Concomitant]
     Active Substance: MIRABEGRON
     Dates: start: 20241031

REACTIONS (1)
  - Gout [None]
